FAERS Safety Report 12275281 (Version 2)
Quarter: 2016Q2

REPORT INFORMATION
  Report Type: Spontaneous
  Country: US (occurrence: US)
  Receive Date: 20160415
  Receipt Date: 20160512
  Transmission Date: 20160815
  Serious: No
  Sender: FDA-Public Use
  Company Number: US-UCBSA-2015018000

PATIENT
  Age: 68 Year
  Sex: Female
  Weight: 58.5 kg

DRUGS (5)
  1. NEUPRO [Suspect]
     Active Substance: ROTIGOTINE
     Indication: PARKINSON^S DISEASE
     Dosage: 2 MG, UNK
     Dates: start: 2015, end: 201504
  2. DIVIGEL [Concomitant]
     Active Substance: ESTRADIOL
     Indication: HYPERTENSION
     Dosage: 0.5 MG, ONCE DAILY (QD)
  3. CARBIDOPA AND LEVODOPA [Concomitant]
     Active Substance: CARBIDOPA\LEVODOPA
     Indication: PARKINSON^S DISEASE
     Dosage: UNK, 3X/DAY (TID)
  4. PROGESTERONE. [Concomitant]
     Active Substance: PROGESTERONE
     Indication: HYPERTENSION
     Dosage: 100 MG
     Route: 048
  5. ESTROGEN [Concomitant]
     Active Substance: ESTRONE\SUS SCROFA OVARY
     Indication: HYPERTENSION
     Dosage: 10 ?G, 1 TABLET

REACTIONS (3)
  - Insomnia [Recovered/Resolved]
  - Wrong technique in product usage process [Unknown]
  - Headache [Recovered/Resolved]

NARRATIVE: CASE EVENT DATE: 2015
